FAERS Safety Report 9555312 (Version 1)
Quarter: 2013Q3

REPORT INFORMATION
  Report Type: Spontaneous
  Country: US (occurrence: None)
  Receive Date: 20130724
  Receipt Date: 20130724
  Transmission Date: 20140515
  Serious: Yes (Other)
  Sender: FDA-Public Use
  Company Number: PHEH2013US005575

PATIENT
  Age: 50 Year
  Sex: Female

DRUGS (2)
  1. GILENYA [Suspect]
     Indication: MULTIPLE SCLEROSIS
     Route: 048
     Dates: start: 201212
  2. AMPYRA (FAMPRIDINE) TABLET, 10MG [Concomitant]

REACTIONS (4)
  - Insomnia [None]
  - Throat irritation [None]
  - Nausea [None]
  - Dizziness [None]
